FAERS Safety Report 8204176-X (Version None)
Quarter: 2012Q1

REPORT INFORMATION
  Report Type: 
  Country: None (occurrence: None)
  Receive Date: 20120313
  Receipt Date: 20120305
  Transmission Date: 20120608
  Serious: Yes (Other)
  Sender: FDA-Public Use
  Company Number: JP-ASTELLAS-2012JP002020

PATIENT
  Age: 49 Year
  Sex: Male

DRUGS (7)
  1. PROGRAF [Suspect]
     Indication: STEM CELL TRANSPLANT
     Route: 065
  2. METHYLPREDNISOLONE [Concomitant]
     Indication: STEM CELL TRANSPLANT
     Route: 065
  3. ANTI-THYMOCYTE GLOBULIN NOS [Concomitant]
     Indication: STEM CELL TRANSPLANT
     Dosage: 2.5 MG/KG, UNKNOWN/D
     Route: 065
  4. FLUDARABINE PHOSPHATE [Concomitant]
     Route: 065
  5. MELPHALAN HYDROCHLORIDE [Concomitant]
     Route: 065
  6. PREDNISOLONE [Concomitant]
     Indication: STEM CELL TRANSPLANT
     Route: 065
  7. MYCOPHENOLATE MOFETIL [Concomitant]
     Indication: STEM CELL TRANSPLANT
     Route: 065

REACTIONS (3)
  - CYTOMEGALOVIRUS VIRAEMIA [None]
  - CHRONIC GRAFT VERSUS HOST DISEASE [None]
  - DRUG INEFFECTIVE [None]
